FAERS Safety Report 18060890 (Version 3)
Quarter: 2020Q3

REPORT INFORMATION
  Report Type: Spontaneous
  Country: PK (occurrence: PK)
  Receive Date: 20200723
  Receipt Date: 20200827
  Transmission Date: 20201103
  Serious: Yes (Hospitalization, Other)
  Sender: FDA-Public Use
  Company Number: PK-NOVOPROD-741622

PATIENT
  Age: 38 Year
  Sex: Male
  Weight: 70 kg

DRUGS (3)
  1. NOVORAPID [Suspect]
     Active Substance: INSULIN ASPART
     Indication: TYPE 2 DIABETES MELLITUS
     Dosage: 25 IU, QD (TWICE A DAY, TOTAL 25 UNITS PER DAY)
     Route: 058
     Dates: start: 20120101
  2. NOVORAPID [Suspect]
     Active Substance: INSULIN ASPART
     Dosage: 10 IU, TID (30 UNITS PER DAY)
     Route: 058
     Dates: start: 20200330
  3. LANTUS [Concomitant]
     Active Substance: INSULIN GLARGINE
     Indication: TYPE 2 DIABETES MELLITUS
     Dosage: 28 IU, QD (AT NIGHT) (SINCE 8 YEARS)
     Route: 058

REACTIONS (3)
  - Intentional dose omission [Unknown]
  - Dyspepsia [Recovered/Resolved]
  - Diabetic ketoacidosis [Recovered/Resolved]

NARRATIVE: CASE EVENT DATE: 20200321
